FAERS Safety Report 5381740-7 (Version None)
Quarter: 2007Q3

REPORT INFORMATION
  Report Type: 
  Country: None (occurrence: None)
  Receive Date: 20070709
  Receipt Date: 20070629
  Transmission Date: 20080115
  Serious: Yes (Other)
  Sender: FDA-Public Use
  Company Number: PHBS2007FR11228

PATIENT
  Sex: Female
  Weight: 1.7 kg

DRUGS (5)
  1. PARLODEL [Suspect]
     Route: 064
  2. ATOSIBAN [Suspect]
     Route: 064
  3. MADOPAR [Suspect]
  4. CELESTENE [Suspect]
     Route: 064
  5. SALBUTAMOL [Suspect]

REACTIONS (5)
  - DRUG EXPOSURE DURING PREGNANCY [None]
  - FOETAL HEART RATE ABNORMAL [None]
  - INTUBATION [None]
  - PREMATURE BABY [None]
  - RESPIRATORY DISTRESS [None]
